FAERS Safety Report 14480793 (Version 2)
Quarter: 2018Q3

REPORT INFORMATION
  Report Type: Spontaneous
  Country: JP (occurrence: JP)
  Receive Date: 20180202
  Receipt Date: 20180919
  Transmission Date: 20181010
  Serious: Yes (Hospitalization, Other)
  Sender: FDA-Public Use
  Company Number: JP-BAYER-2018-016815

PATIENT
  Age: 40 Year
  Sex: Female
  Weight: 66 kg

DRUGS (3)
  1. LIORESAL [Concomitant]
     Active Substance: BACLOFEN
     Dosage: DAILY DOSE 20 MG
     Route: 048
  2. TERNELIN [Concomitant]
     Active Substance: TIZANIDINE
     Dosage: DAILY DOSE 3 MG
     Route: 048
  3. BETAFERON [Suspect]
     Active Substance: INTERFERON BETA-1B
     Indication: MULTIPLE SCLEROSIS
     Dosage: 9600000UNITS DAILY
     Route: 058
     Dates: start: 20100419, end: 20170726

REACTIONS (2)
  - Benign abdominal neoplasm [None]
  - Uterine cancer [Not Recovered/Not Resolved]

NARRATIVE: CASE EVENT DATE: 20161206
